FAERS Safety Report 9851240 (Version 3)
Quarter: 2014Q1

REPORT INFORMATION
  Report Type: Spontaneous
  Country: JP (occurrence: JP)
  Receive Date: 20140128
  Receipt Date: 20140331
  Transmission Date: 20141002
  Serious: Yes (Other)
  Sender: FDA-Public Use
  Company Number: JP-UCBSA-110597

PATIENT
  Age: 80 Year
  Sex: Male

DRUGS (11)
  1. XYZAL [Suspect]
     Indication: ECZEMA
     Route: 048
     Dates: start: 20131224, end: 20140113
  2. TRAMCET [Suspect]
     Route: 048
  3. BETANIS [Concomitant]
     Indication: HYPERTONIC BLADDER
     Route: 048
  4. ALENDRONATE [Concomitant]
     Indication: OSTEOPOROSIS
     Route: 048
  5. LYRICA [Concomitant]
     Indication: PAIN
     Route: 048
  6. CALFINA [Concomitant]
     Route: 048
  7. TRYPTANOL [Concomitant]
     Route: 048
  8. DOMPERIDONE [Concomitant]
     Route: 048
  9. MYORELARK [Concomitant]
     Route: 048
  10. CO-DIO [Concomitant]
     Route: 048
  11. SODIUM RABEPRAZOLE [Concomitant]
     Route: 048

REACTIONS (1)
  - Erythema multiforme [Not Recovered/Not Resolved]
